FAERS Safety Report 10255360 (Version 1)
Quarter: 2014Q2

REPORT INFORMATION
  Report Type: Spontaneous
  Country: US (occurrence: US)
  Receive Date: 20140624
  Receipt Date: 20140624
  Transmission Date: 20141212
  Serious: Yes (Hospitalization)
  Sender: FDA-Public Use
  Company Number: US-PFIZER INC-2014169085

PATIENT
  Sex: Female

DRUGS (1)
  1. NEURONTIN [Suspect]
     Indication: BURNING MOUTH SYNDROME
     Dosage: UNK

REACTIONS (3)
  - Off label use [Unknown]
  - Convulsion [Unknown]
  - Drug effect incomplete [Recovering/Resolving]
